FAERS Safety Report 10540834 (Version 4)
Quarter: 2015Q2

REPORT INFORMATION
  Report Type: Spontaneous
  Country: US (occurrence: US)
  Receive Date: 20141024
  Receipt Date: 20150416
  Transmission Date: 20150821
  Serious: Yes (Death, Hospitalization, Other)
  Sender: FDA-Public Use
  Company Number: US-GLAXOSMITHKLINE-A1083772A

PATIENT

DRUGS (1)
  1. VOTRIENT [Suspect]
     Active Substance: PAZOPANIB HYDROCHLORIDE
     Indication: PRODUCT USED FOR UNKNOWN INDICATION
     Dosage: 600 MG, U
     Route: 065

REACTIONS (7)
  - Loss of consciousness [Unknown]
  - Heart rate decreased [Unknown]
  - Constipation [Unknown]
  - Death [Fatal]
  - Abdominal pain upper [Unknown]
  - Abdominal pain [Unknown]
  - Decreased appetite [Unknown]
